FAERS Safety Report 5623979-9 (Version None)
Quarter: 2008Q1

REPORT INFORMATION
  Report Type: 
  Country: None (occurrence: None)
  Receive Date: 20080208
  Receipt Date: 20080208
  Transmission Date: 20080703
  Serious: No
  Sender: FDA-Public Use
  Company Number: None

PATIENT
  Age: 67 Year
  Sex: Male

DRUGS (1)
  1. LIPITOR [Suspect]

REACTIONS (4)
  - AMYOTROPHIC LATERAL SCLEROSIS [None]
  - BRONCHITIS [None]
  - PNEUMONIA [None]
  - PROSTATE CANCER [None]
